FAERS Safety Report 13064843 (Version 1)
Quarter: 2016Q4

REPORT INFORMATION
  Report Type: Spontaneous
  Country: FR (occurrence: FR)
  Receive Date: 20161227
  Receipt Date: 20161227
  Transmission Date: 20170207
  Serious: Yes (Life-Threatening, Hospitalization, Other)
  Sender: FDA-Public Use
  Company Number: FR-PFIZER INC-2016595747

PATIENT
  Age: 60 Year
  Sex: Male

DRUGS (5)
  1. SPECIAFOLDINE [Concomitant]
     Active Substance: FOLIC ACID
     Dosage: 5 MG, UNK
     Route: 048
  2. VENTOLINE [Concomitant]
     Active Substance: ALBUTEROL
     Dosage: UNK, AS NEEDED
     Route: 055
  3. IMETH [Suspect]
     Active Substance: METHOTREXATE SODIUM
     Indication: PSORIASIS
     Dosage: UNK
     Dates: start: 20160601, end: 20161115
  4. IMETH [Suspect]
     Active Substance: METHOTREXATE SODIUM
     Dosage: 20 MG, WEEKLY
     Route: 065
     Dates: start: 201606, end: 20161115
  5. AERIUS [Concomitant]
     Active Substance: DESLORATADINE
     Dosage: 5 MG, DAILY
     Route: 048

REACTIONS (9)
  - Ulcerative keratitis [Unknown]
  - Brain injury [Unknown]
  - Vertebral artery occlusion [Unknown]
  - Lower respiratory tract congestion [Unknown]
  - Meningitis listeria [Recovering/Resolving]
  - Encephalitis brain stem [Recovering/Resolving]
  - Bacterial abscess central nervous system [Recovering/Resolving]
  - Punctate keratitis [Unknown]
  - Condition aggravated [Unknown]

NARRATIVE: CASE EVENT DATE: 20161115
